FAERS Safety Report 10303622 (Version 2)
Quarter: 2014Q3

REPORT INFORMATION
  Report Type: Spontaneous
  Country: US (occurrence: US)
  Receive Date: 20140714
  Receipt Date: 20140714
  Transmission Date: 20150326
  Serious: Yes (Hospitalization)
  Sender: FDA-Public Use
  Company Number: US-GILEAD-2013-0080671

PATIENT
  Sex: Male

DRUGS (1)
  1. LETAIRIS [Suspect]
     Active Substance: AMBRISENTAN
     Indication: PULMONARY HYPERTENSION
     Dosage: 5 MG, UNK
     Route: 048
     Dates: start: 20130718, end: 20130730

REACTIONS (5)
  - Eye swelling [Unknown]
  - Peripheral swelling [Unknown]
  - Fluid retention [Unknown]
  - Oedema peripheral [Unknown]
  - Abdominal distension [Unknown]
